FAERS Safety Report 14640808 (Version 1)
Quarter: 2018Q1

REPORT INFORMATION
  Report Type: Spontaneous
  Country: US (occurrence: US)
  Receive Date: 20180314
  Receipt Date: 20180314
  Transmission Date: 20180509
  Serious: Yes (Hospitalization)
  Sender: FDA-Public Use
  Company Number: None

PATIENT
  Age: 81 Year
  Sex: Female

DRUGS (3)
  1. ANASTROZOLE 1MG [Concomitant]
     Active Substance: ANASTROZOLE
  2. HYDROCHLOROTHIAZIDE 12.5MG [Concomitant]
     Active Substance: HYDROCHLOROTHIAZIDE
  3. IBRANCE [Suspect]
     Active Substance: PALBOCICLIB
     Indication: BREAST CANCER FEMALE
     Dosage: ?          OTHER FREQUENCY:DAILY X 21/28 DAYS;?
     Route: 048
     Dates: start: 20180118, end: 20180308

REACTIONS (2)
  - Nausea [None]
  - Influenza [None]

NARRATIVE: CASE EVENT DATE: 20180308
